FAERS Safety Report 8565604-3 (Version None)
Quarter: 2012Q3

REPORT INFORMATION
  Report Type: 
  Country: None (occurrence: None)
  Receive Date: 20120803
  Receipt Date: 20120730
  Transmission Date: 20120928
  Serious: Yes (Other)
  Sender: FDA-Public Use
  Company Number: GB-JNJFOC-20120517527

PATIENT
  Age: 25 Year
  Sex: Female
  Weight: 90 kg

DRUGS (3)
  1. ABILIFY [Interacting]
     Indication: PRODUCT USED FOR UNKNOWN INDICATION
     Route: 048
     Dates: start: 20110728
  2. RISPERIDONE [Suspect]
     Indication: PRODUCT USED FOR UNKNOWN INDICATION
     Route: 048
  3. PALIPERIDONE PALMITATE [Interacting]
     Indication: PRODUCT USED FOR UNKNOWN INDICATION
     Route: 030
     Dates: start: 20110701

REACTIONS (5)
  - PSYCHOTIC BEHAVIOUR [None]
  - DRUG INTERACTION [None]
  - MENTAL IMPAIRMENT [None]
  - DEPRESSION [None]
  - HYPERPROLACTINAEMIA [None]
